FAERS Safety Report 21850459 (Version 1)
Quarter: 2023Q1

REPORT INFORMATION
  Report Type: Spontaneous
  Country: None (occurrence: CA)
  Receive Date: 20230111
  Receipt Date: 20230111
  Transmission Date: 20230418
  Serious: Yes (Other)
  Sender: FDA-Public Use
  Company Number: CA-B.Braun Medical Inc.-2136609

PATIENT
  Age: 75 Year
  Sex: Male

DRUGS (11)
  1. METRONIDAZOLE [Suspect]
     Active Substance: METRONIDAZOLE
  2. ADVAIR HFA [Suspect]
     Active Substance: FLUTICASONE PROPIONATE\SALMETEROL XINAFOATE
  3. ALBUTEROL [Suspect]
     Active Substance: ALBUTEROL
  4. BUDESONIDE [Suspect]
     Active Substance: BUDESONIDE
  5. CEPHALEXIN [Suspect]
     Active Substance: CEPHALEXIN
  6. METRONIDAZOLE [Suspect]
     Active Substance: METRONIDAZOLE
  7. MONTELUKAST [Suspect]
     Active Substance: MONTELUKAST SODIUM
  8. PREDNISONE [Suspect]
     Active Substance: PREDNISONE
  9. SPIRIVA [Suspect]
     Active Substance: TIOTROPIUM BROMIDE MONOHYDRATE
  10. SYMBICORT [Suspect]
     Active Substance: BUDESONIDE\FORMOTEROL FUMARATE DIHYDRATE
  11. THEOPHYLLINE IN DEXTROSE [Suspect]
     Active Substance: DEXTROSE MONOHYDRATE\THEOPHYLLINE\THEOPHYLLINE ANHYDROUS

REACTIONS (8)
  - Asthma [Unknown]
  - Chest discomfort [Unknown]
  - Cough [Unknown]
  - Dyspnoea exertional [Unknown]
  - Wheezing [Unknown]
  - Full blood count abnormal [Unknown]
  - Reversible airways obstruction [Unknown]
  - Weight increased [Unknown]
